FAERS Safety Report 5300176-8 (Version None)
Quarter: 2007Q2

REPORT INFORMATION
  Report Type: 
  Country: None (occurrence: None)
  Receive Date: 20070418
  Receipt Date: 20070416
  Transmission Date: 20071010
  Serious: Yes (Other)
  Sender: FDA-Public Use
  Company Number: US-BAYER-200710185BCC

PATIENT
  Sex: Female
  Weight: 109 kg

DRUGS (1)
  1. ALKA SELTZER PLUS EFFERVESCENT ORIGINAL [Suspect]
     Indication: DRUG USE FOR UNKNOWN INDICATION
     Route: 048

REACTIONS (1)
  - GASTRIC ULCER [None]
